FAERS Safety Report 10312162 (Version 2)
Quarter: 2014Q3

REPORT INFORMATION
  Report Type: Spontaneous
  Country: US (occurrence: US)
  Receive Date: 20140718
  Receipt Date: 20140730
  Transmission Date: 20150326
  Serious: Yes (Death)
  Sender: FDA-Public Use
  Company Number: US-009507513-1407USA005817

PATIENT
  Age: 56 Year
  Sex: Male

DRUGS (19)
  1. ETOPOSIDE. [Concomitant]
     Active Substance: ETOPOSIDE
     Indication: PLASMA CELL MYELOMA
     Dosage: UNK
  2. MESNA. [Concomitant]
     Active Substance: MESNA
     Indication: PLASMA CELL MYELOMA
     Dosage: UNK
  3. THALIDOMIDE [Concomitant]
     Active Substance: THALIDOMIDE
     Indication: PLASMA CELL MYELOMA
     Dosage: UNK
  4. VORINOSTAT [Suspect]
     Active Substance: VORINOSTAT
     Indication: PLASMA CELL MYELOMA
     Dosage: UNK
     Route: 048
  5. DOXORUBICIN [Suspect]
     Active Substance: DOXORUBICIN
     Indication: PLASMA CELL MYELOMA
     Dosage: UNK
  6. PREDNISOLONE. [Suspect]
     Active Substance: PREDNISOLONE
     Indication: PLASMA CELL MYELOMA
     Dosage: UNK
  7. CYCLOPHOSPHAMIDE. [Concomitant]
     Active Substance: CYCLOPHOSPHAMIDE
     Indication: PLASMA CELL MYELOMA
     Dosage: UNK
  8. CYTARABINE. [Concomitant]
     Active Substance: CYTARABINE
     Indication: PLASMA CELL MYELOMA
     Dosage: UNK
  9. VINCRISTINE SULFATE. [Concomitant]
     Active Substance: VINCRISTINE SULFATE
     Indication: PLASMA CELL MYELOMA
     Dosage: UNK
  10. DEXAMETHASONE. [Suspect]
     Active Substance: DEXAMETHASONE
     Indication: PLASMA CELL MYELOMA
     Dosage: UNK
     Route: 048
  11. CISPLATIN. [Concomitant]
     Active Substance: CISPLATIN
     Indication: PLASMA CELL MYELOMA
     Dosage: UNK
  12. STEM CELLS (AS DRUG) [Concomitant]
     Indication: PLASMA CELL MYELOMA
     Dosage: UNK
     Dates: start: 1997
  13. TENOFOVIR [Concomitant]
     Active Substance: TENOFOVIR
     Indication: PLASMA CELL MYELOMA
     Dosage: 300 MG/D
     Dates: start: 201204
  14. LENALIDOMIDE [Concomitant]
     Active Substance: LENALIDOMIDE
     Indication: PLASMA CELL MYELOMA
     Dosage: UNK
  15. BORTEZOMIB [Concomitant]
     Active Substance: BORTEZOMIB
     Indication: PLASMA CELL MYELOMA
     Dosage: UNK
  16. POMALIDOMIDE [Concomitant]
     Active Substance: POMALIDOMIDE
     Indication: PLASMA CELL MYELOMA
     Dosage: UNK
     Dates: start: 201204
  17. STEM CELLS (AS DRUG) [Concomitant]
     Dosage: UNK
     Dates: start: 2008
  18. CARFILZOMIB [Concomitant]
     Active Substance: CARFILZOMIB
     Indication: PLASMA CELL MYELOMA
     Dosage: UNK
  19. VELCADE [Concomitant]
     Active Substance: BORTEZOMIB
     Indication: PLASMA CELL MYELOMA
     Dosage: UNK

REACTIONS (1)
  - Hepatitis B [Fatal]
